FAERS Safety Report 7880674-3 (Version None)
Quarter: 2011Q4

REPORT INFORMATION
  Report Type: 
  Country: None (occurrence: None)
  Receive Date: 20111101
  Receipt Date: 20111028
  Transmission Date: 20120403
  Serious: Yes (Hospitalization, Other)
  Sender: FDA-Public Use
  Company Number: US-AMGEN-USASP2011052969

PATIENT
  Sex: Female
  Weight: 72.336 kg

DRUGS (1)
  1. NPLATE [Suspect]
     Indication: IDIOPATHIC THROMBOCYTOPENIC PURPURA
     Dosage: 70 MUG, UNK
     Dates: start: 20110623, end: 20110623

REACTIONS (1)
  - HEPATIC CIRRHOSIS [None]
